FAERS Safety Report 18424352 (Version 4)
Quarter: 2020Q4

REPORT INFORMATION
  Report Type: Report from Study
  Country: TR (occurrence: TR)
  Receive Date: 20201026
  Receipt Date: 20201229
  Transmission Date: 20210114
  Serious: Yes (Hospitalization, Other)
  Sender: FDA-Public Use
  Company Number: TR-ROCHE-2677440

PATIENT
  Age: 36 Year
  Sex: Male
  Weight: 104.5 kg

DRUGS (7)
  1. AVELOX [Concomitant]
     Active Substance: MOXIFLOXACIN HYDROCHLORIDE
     Indication: PNEUMONIA
     Dates: start: 20201212
  2. ZALDIAR [Concomitant]
     Active Substance: ACETAMINOPHEN\TRAMADOL HYDROCHLORIDE
     Dates: start: 20200820
  3. PANTOPRAZOLE [Concomitant]
     Active Substance: PANTOPRAZOLE
     Indication: PROPHYLAXIS
     Dates: start: 20171222
  4. NOVOSEF [Concomitant]
     Indication: PNEUMONIA
     Dates: start: 20201212, end: 20201214
  5. ATEZOLIZUMAB. [Suspect]
     Active Substance: ATEZOLIZUMAB
     Indication: NON-SMALL CELL LUNG CANCER
     Dosage: DATE OF MOST RECENT DOSE OF ATEZOLIZUMAB PRIOR TO AE ONSET: 20/AUG/2020?ON 26/NOV/2020, AT 12:10 REC
     Route: 042
     Dates: start: 20170718
  6. CLEXANE [Concomitant]
     Active Substance: ENOXAPARIN SODIUM
     Indication: PULMONARY EMBOLISM
     Dosage: 10 MG/ML
     Route: 042
     Dates: start: 20200611
  7. AERIUS [Concomitant]
     Indication: RASH MACULO-PAPULAR
     Dates: start: 20200724

REACTIONS (3)
  - Langerhans^ cell histiocytosis [Recovering/Resolving]
  - Pneumonia [Recovering/Resolving]
  - Dyspnoea [Recovered/Resolved]

NARRATIVE: CASE EVENT DATE: 20200911
